FAERS Safety Report 6021374-4 (Version None)
Quarter: 2008Q4

REPORT INFORMATION
  Report Type: 
  Country: None (occurrence: None)
  Receive Date: 20081229
  Receipt Date: 20081218
  Transmission Date: 20090506
  Serious: Yes (Other)
  Sender: FDA-Public Use
  Company Number: B0550085A

PATIENT
  Sex: Male

DRUGS (6)
  1. ZIAGEN [Suspect]
     Indication: ACQUIRED IMMUNODEFICIENCY SYNDROME
     Route: 048
  2. EPIVIR [Suspect]
     Indication: ACQUIRED IMMUNODEFICIENCY SYNDROME
     Route: 048
  3. LOPINAVIR AND RITONAVIR [Suspect]
     Indication: ACQUIRED IMMUNODEFICIENCY SYNDROME
     Route: 065
  4. COTRIM [Concomitant]
     Route: 065
  5. METRONIDAZOLE [Concomitant]
     Route: 065
  6. GANCICLOVIR [Concomitant]
     Indication: CYTOMEGALOVIRUS DUODENITIS
     Route: 042

REACTIONS (5)
  - C-REACTIVE PROTEIN INCREASED [None]
  - IMMUNE RECONSTITUTION SYNDROME [None]
  - MYCOBACTERIUM KANSASII INFECTION [None]
  - PYREXIA [None]
  - WHITE BLOOD CELL COUNT INCREASED [None]
